FAERS Safety Report 8153171-8 (Version None)
Quarter: 2012Q1

REPORT INFORMATION
  Report Type: 
  Country: None (occurrence: None)
  Receive Date: 20120103
  Receipt Date: 20111031
  Transmission Date: 20120608
  Serious: No
  Sender: FDA-Public Use
  Company Number: AE-2011-002916

PATIENT
  Age: 63 Year
  Sex: Female
  Weight: 73.0291 kg

DRUGS (5)
  1. PEGASYS [Concomitant]
  2. LORAZEPAM [Concomitant]
  3. PROPRANOLOL [Concomitant]
  4. RIBAVIRIN [Concomitant]
  5. INCIVEK [Suspect]
     Dosage: 2250 MG (750 MG,1 IN 8 HR),ORAL
     Route: 048
     Dates: start: 20111025, end: 20111103

REACTIONS (2)
  - RASH [None]
  - HYPERTROPHIC SCAR [None]
